FAERS Safety Report 9319480 (Version 17)
Quarter: 2016Q3

REPORT INFORMATION
  Report Type: Spontaneous
  Country: US (occurrence: US)
  Receive Date: 20130530
  Receipt Date: 20160919
  Transmission Date: 20161109
  Serious: Yes (Hospitalization, Other)
  Sender: FDA-Public Use
  Company Number: US-GLAXOSMITHKLINE-A0989550A

PATIENT
  Age: 38 Year
  Sex: Female

DRUGS (23)
  1. OPSUMIT [Suspect]
     Active Substance: MACITENTAN
     Indication: PRODUCT USED FOR UNKNOWN INDICATION
  2. ADCIRCA [Concomitant]
     Active Substance: TADALAFIL
  3. FLOLAN [Suspect]
     Active Substance: EPOPROSTENOL SODIUM
     Dosage: 29 NG/KG/MIN, CO
     Route: 042
  4. FLOLAN [Suspect]
     Active Substance: EPOPROSTENOL SODIUM
     Indication: PULMONARY ARTERIAL HYPERTENSION
     Dosage: 30 NG/KG/MIN CONTINUOUSLY, CONCENTRATION 30,000 NG/ML, VIAL STRENGTH 1.5 MGPUMP RATE: 76 ML/DAY[...]
     Route: 042
     Dates: start: 20080728
  5. FLOLAN [Suspect]
     Active Substance: EPOPROSTENOL SODIUM
     Dosage: UNK
     Dates: start: 20080729
  6. FLOLAN [Suspect]
     Active Substance: EPOPROSTENOL SODIUM
     Dosage: UNK
     Dates: start: 20080729
  7. FLOLAN [Suspect]
     Active Substance: EPOPROSTENOL SODIUM
     Dosage: UNK
     Dates: start: 20080729
  8. FLOLAN [Suspect]
     Active Substance: EPOPROSTENOL SODIUM
     Dosage: 29 NG/KG/MIN, CONTINUOUSLY
     Route: 042
     Dates: start: 20120703
  9. FLOLAN [Suspect]
     Active Substance: EPOPROSTENOL SODIUM
     Indication: PULMONARY ARTERIAL HYPERTENSION
  10. FLOLAN [Suspect]
     Active Substance: EPOPROSTENOL SODIUM
  11. FLOLAN [Suspect]
     Active Substance: EPOPROSTENOL SODIUM
     Dosage: UNK
     Dates: start: 20080729
  12. FLOLAN [Suspect]
     Active Substance: EPOPROSTENOL SODIUM
     Dosage: UNK
     Dates: start: 20080729
  13. FLOLAN [Suspect]
     Active Substance: EPOPROSTENOL SODIUM
     Dosage: 29 NG/KG/MIN
     Route: 042
  14. FLOLAN [Suspect]
     Active Substance: EPOPROSTENOL SODIUM
     Dosage: 29 NG/KG/MIN
     Route: 042
  15. FLOLAN [Suspect]
     Active Substance: EPOPROSTENOL SODIUM
     Dosage: UNK
     Dates: start: 20080729
  16. FLOLAN [Suspect]
     Active Substance: EPOPROSTENOL SODIUM
     Dosage: UNK
     Dates: start: 20080729
  17. FLOLAN [Suspect]
     Active Substance: EPOPROSTENOL SODIUM
     Dosage: UNK
     Dates: start: 20080729
  18. FLOLAN [Suspect]
     Active Substance: EPOPROSTENOL SODIUM
     Dosage: UNK
     Dates: start: 20080728
  19. FLOLAN [Suspect]
     Active Substance: EPOPROSTENOL SODIUM
     Dosage: 29 NG/KG/MINUTE CONTINUOUSLY
     Route: 042
  20. TRACLEER [Suspect]
     Active Substance: BOSENTAN
     Indication: PRODUCT USED FOR UNKNOWN INDICATION
  21. FLOLAN [Suspect]
     Active Substance: EPOPROSTENOL SODIUM
     Dosage: 29 NG/KG/MIN, CONTINUOUSLY
     Route: 042
     Dates: start: 20120703
  22. FLOLAN [Suspect]
     Active Substance: EPOPROSTENOL SODIUM
     Dosage: 20 NG/KG/MIN
  23. FLOLAN [Suspect]
     Active Substance: EPOPROSTENOL SODIUM
     Dosage: 29 NG/KG/MIN
     Route: 042

REACTIONS (37)
  - Headache [Not Recovered/Not Resolved]
  - Dyspnoea [Unknown]
  - Central venous catheterisation [Unknown]
  - Heart rate increased [Unknown]
  - Feeling hot [Not Recovered/Not Resolved]
  - Oral candidiasis [Unknown]
  - Nausea [Unknown]
  - Ulcer [Unknown]
  - Gastrointestinal sounds abnormal [Unknown]
  - Weight decreased [Unknown]
  - Dyspnoea [Unknown]
  - Catheter site pain [Unknown]
  - Faeces discoloured [Unknown]
  - Fatigue [Unknown]
  - Malaise [Unknown]
  - Asthenia [Unknown]
  - Headache [Unknown]
  - Staphylococcal skin infection [Unknown]
  - Infusion site erythema [Recovering/Resolving]
  - Abdominal discomfort [Unknown]
  - Central venous catheter removal [Unknown]
  - Gingivitis [Recovered/Resolved]
  - Device related infection [Unknown]
  - Complication associated with device [Unknown]
  - Somnolence [Unknown]
  - Hyperhidrosis [Unknown]
  - Catheter site discharge [Unknown]
  - Infusion site swelling [Unknown]
  - Decreased appetite [Unknown]
  - Catheter site pruritus [Unknown]
  - Stress [Unknown]
  - Catheter site infection [Unknown]
  - Pneumonitis [Not Recovered/Not Resolved]
  - Catheter site erythema [Unknown]
  - Infusion site warmth [Unknown]
  - Weight fluctuation [Unknown]
  - Emergency care examination [Unknown]

NARRATIVE: CASE EVENT DATE: 20120810
